FAERS Safety Report 19372110 (Version 5)
Quarter: 2021Q3

REPORT INFORMATION
  Report Type: Spontaneous
  Country: CA (occurrence: CA)
  Receive Date: 20210604
  Receipt Date: 20210919
  Transmission Date: 20211014
  Serious: Yes (Other)
  Sender: FDA-Public Use
  Company Number: CA-CELLTRION INC.-2020CA023999

PATIENT

DRUGS (21)
  1. INFLECTRA [Suspect]
     Active Substance: INFLIXIMAB-DYYB
     Dosage: 400 MG Q (EVERY)EVERY 6 WEEKS
     Route: 042
     Dates: start: 20210824
  2. DIMENHYDRINATE. [Concomitant]
     Active Substance: DIMENHYDRINATE
     Dosage: 25 MG
     Route: 048
     Dates: start: 20201022, end: 20201022
  3. DIMENHYDRINATE. [Concomitant]
     Active Substance: DIMENHYDRINATE
     Indication: PREMEDICATION
     Dosage: 25 MG
     Route: 048
     Dates: start: 20200716, end: 20200716
  4. DIPHENHYDRAMINE. [Concomitant]
     Active Substance: DIPHENHYDRAMINE
     Dosage: 25 MG
     Dates: start: 20201022, end: 20201022
  5. HYDROCORTISONE. [Concomitant]
     Active Substance: HYDROCORTISONE
     Dosage: 100 MG
     Dates: start: 20200730, end: 20200730
  6. INFLECTRA [Suspect]
     Active Substance: INFLIXIMAB-DYYB
     Dosage: 400 MG Q (EVERY) 0, 2, 6 WEEKS, THEN EVERY 8 WEEKS
     Route: 042
     Dates: start: 20200730
  7. INFLECTRA [Suspect]
     Active Substance: INFLIXIMAB-DYYB
     Dosage: 400 MG Q (EVERY) 0, 2, 6 WEEKS, THEN EVERY 8 WEEKS
     Route: 042
     Dates: start: 20200826
  8. INFLECTRA [Suspect]
     Active Substance: INFLIXIMAB-DYYB
     Dosage: 400 MG Q (EVERY) 0, 2, 6 WEEKS, THEN EVERY 8 WEEKS
     Route: 042
     Dates: start: 20201022
  9. ACETAMINOPHEN. [Concomitant]
     Active Substance: ACETAMINOPHEN
     Dosage: 325 MG
     Dates: start: 20201022, end: 20201022
  10. DIMENHYDRINATE. [Concomitant]
     Active Substance: DIMENHYDRINATE
     Dosage: 25 MG
     Route: 048
     Dates: start: 20200730, end: 20200730
  11. INFLECTRA [Suspect]
     Active Substance: INFLIXIMAB-DYYB
     Dosage: 400 MG Q (EVERY)EVERY 6 WEEKS
     Route: 042
     Dates: start: 20210420
  12. ACETAMINOPHEN. [Concomitant]
     Active Substance: ACETAMINOPHEN
     Dosage: 650 MG
     Dates: start: 20200730, end: 20200730
  13. HYDROCORTISONE. [Concomitant]
     Active Substance: HYDROCORTISONE
     Dosage: 100 MG
     Dates: start: 20201022, end: 20201022
  14. INFLECTRA [Suspect]
     Active Substance: INFLIXIMAB-DYYB
     Dosage: 400 MG Q (EVERY) 0, 2, 6 WEEKS, THEN EVERY 8 WEEKS
     Route: 042
     Dates: start: 20210216
  15. INFLECTRA [Suspect]
     Active Substance: INFLIXIMAB-DYYB
     Dosage: 400 MG Q (EVERY)EVERY 6 WEEKS
     Route: 042
     Dates: start: 20210601
  16. ACETAMINOPHEN. [Concomitant]
     Active Substance: ACETAMINOPHEN
     Indication: PREMEDICATION
     Dosage: 650 MG
     Dates: start: 20200716, end: 20200716
  17. DIPHENHYDRAMINE. [Concomitant]
     Active Substance: DIPHENHYDRAMINE
     Dosage: 25 MG
     Dates: start: 20200730, end: 20200730
  18. HYDROCORTISONE. [Concomitant]
     Active Substance: HYDROCORTISONE
     Indication: PREMEDICATION
     Dosage: 100 MG
     Dates: start: 20200716, end: 20200716
  19. INFLECTRA [Suspect]
     Active Substance: INFLIXIMAB-DYYB
     Indication: PSORIATIC ARTHROPATHY
     Dosage: 400 MG Q (EVERY) 0, 2, 6 WEEKS, THEN EVERY 8 WEEKS
     Route: 042
     Dates: start: 20200716
  20. INFLECTRA [Suspect]
     Active Substance: INFLIXIMAB-DYYB
     Dosage: 400 MG Q (EVERY)EVERY 6 WEEKS
     Route: 042
     Dates: start: 20210714
  21. DIPHENHYDRAMINE. [Concomitant]
     Active Substance: DIPHENHYDRAMINE
     Indication: PREMEDICATION
     Dosage: 50 MG
     Dates: start: 20200716, end: 20200716

REACTIONS (22)
  - Therapeutic response shortened [Unknown]
  - Gingival swelling [Unknown]
  - Therapeutic product effect incomplete [Unknown]
  - Off label use [Unknown]
  - Kidney infection [Recovered/Resolved]
  - Tooth infection [Recovered/Resolved]
  - Malaise [Not Recovered/Not Resolved]
  - Off label use [Unknown]
  - Blood pressure systolic increased [Unknown]
  - Cough [Not Recovered/Not Resolved]
  - Intentional product use issue [Unknown]
  - Oropharyngeal pain [Not Recovered/Not Resolved]
  - Loss of personal independence in daily activities [Unknown]
  - Nephrolithiasis [Not Recovered/Not Resolved]
  - Gingival pain [Unknown]
  - Discomfort [Unknown]
  - Renal colic [Unknown]
  - Back pain [Unknown]
  - Psoriatic arthropathy [Unknown]
  - Tooth abscess [Not Recovered/Not Resolved]
  - Heart rate decreased [Unknown]
  - Rhinorrhoea [Not Recovered/Not Resolved]

NARRATIVE: CASE EVENT DATE: 20200716
